FAERS Safety Report 4444495-6 (Version None)
Quarter: 2004Q3

REPORT INFORMATION
  Report Type: 
  Country: None (occurrence: None)
  Receive Date: 20040902
  Receipt Date: 20040817
  Transmission Date: 20050211
  Serious: Yes (Death, Hospitalization)
  Sender: FDA-Public Use
  Company Number: US_0408104609

PATIENT
  Age: 54 Year
  Sex: Female

DRUGS (20)
  1. FORTEO [Suspect]
     Indication: BONE DISORDER
     Dates: start: 20031101, end: 20040501
  2. FORTEO [Suspect]
     Indication: METABOLIC DISORDER
     Dates: start: 20031101, end: 20040501
  3. ACTIQ [Concomitant]
  4. SULFASALAZINE [Concomitant]
  5. METHADONE HCL [Concomitant]
  6. PROTONIX [Concomitant]
  7. PREDNISONE [Concomitant]
  8. HYDROCORTISONE [Concomitant]
  9. CALCIUM CARBONATE [Concomitant]
  10. POTASSIUM CHLORIDE [Concomitant]
  11. ACETAMINOPHEN [Concomitant]
  12. ZINC OXIDE [Concomitant]
  13. DOXYCYCLINE [Concomitant]
  14. LACTOBACILLUS ACIDOPHILUS [Concomitant]
  15. COUMADIN [Concomitant]
  16. PLAVIX [Concomitant]
  17. ERGOCALCIFEROL [Concomitant]
  18. CALCITRIOL [Concomitant]
  19. METAMUCIL-2 [Concomitant]
  20. MICONAZOLE [Concomitant]

REACTIONS (43)
  - ACUTE RESPIRATORY DISTRESS SYNDROME [None]
  - ADRENAL INSUFFICIENCY [None]
  - ARTHRALGIA [None]
  - ASTHENIA [None]
  - BLOOD CALCIUM INCREASED [None]
  - BONE DENSITY DECREASED [None]
  - CALCINOSIS [None]
  - CARDIAC FAILURE CONGESTIVE [None]
  - CARDIOGENIC SHOCK [None]
  - COAGULOPATHY [None]
  - COMA [None]
  - CONDITION AGGRAVATED [None]
  - CONFUSIONAL STATE [None]
  - CONSTIPATION [None]
  - DEHYDRATION [None]
  - DISLOCATION OF VERTEBRA [None]
  - DRUG INEFFECTIVE [None]
  - DYSPNOEA [None]
  - FALL [None]
  - FATIGUE [None]
  - GASTROINTESTINAL DISORDER [None]
  - HEPATIC CONGESTION [None]
  - HYPOGLYCAEMIA [None]
  - HYPONATRAEMIA [None]
  - HYPOTENSION [None]
  - HYPOVOLAEMIA [None]
  - LIVER FUNCTION TEST ABNORMAL [None]
  - LUMBAR RADICULOPATHY [None]
  - MULTI-ORGAN FAILURE [None]
  - NERVE COMPRESSION [None]
  - NOSOCOMIAL INFECTION [None]
  - PAIN IN EXTREMITY [None]
  - PITTING OEDEMA [None]
  - PNEUMONIA [None]
  - PULMONARY OEDEMA [None]
  - RECTAL PROLAPSE [None]
  - RENAL FAILURE ACUTE [None]
  - RHABDOMYOLYSIS [None]
  - SEDATION [None]
  - SEPSIS [None]
  - SHIFT TO THE LEFT [None]
  - SYNOVITIS [None]
  - WHITE BLOOD CELL COUNT INCREASED [None]
